FAERS Safety Report 7852641-7 (Version None)
Quarter: 2011Q4

REPORT INFORMATION
  Report Type: 
  Country: None (occurrence: None)
  Receive Date: 20111026
  Receipt Date: 20111017
  Transmission Date: 20120403
  Serious: Yes (Hospitalization)
  Sender: FDA-Public Use
  Company Number: JP-GLAXOSMITHKLINE-B0733730A

PATIENT
  Sex: Male

DRUGS (2)
  1. DEPAKENE [Suspect]
     Indication: EPILEPSY
     Dosage: 800MG PER DAY
     Route: 048
  2. LAMICTAL [Suspect]
     Indication: EPILEPSY
     Dosage: 25MG PER DAY
     Route: 048
     Dates: start: 20110512, end: 20110606

REACTIONS (10)
  - NAUSEA [None]
  - RASH PAPULAR [None]
  - ERYTHEMA [None]
  - RASH [None]
  - PRURITUS [None]
  - HEPATITIS [None]
  - LIVER DISORDER [None]
  - TOXIC SKIN ERUPTION [None]
  - PYREXIA [None]
  - MALAISE [None]
